FAERS Safety Report 9178509 (Version 1)
Quarter: 2012Q4

REPORT INFORMATION
  Report Type: 
  Country: US (occurrence: US)
  Receive Date: 20121029
  Receipt Date: 20121029
  Transmission Date: 20130627
  Serious: No
  Sender: FDA-Public Use
  Company Number: US-AMGEN-USASP2012054047

PATIENT
  Sex: Female

DRUGS (24)
  1. ENBREL [Suspect]
     Indication: PRODUCT USED FOR UNKNOWN INDICATION
     Dosage: 50 mg, qwk
     Route: 058
  2. HUMALOG [Concomitant]
     Dosage: 100/ML
  3. CALTRATE +D                        /01204201/ [Concomitant]
     Dosage: 600
  4. JANUMET [Concomitant]
     Dosage: 50-500mg
  5. ALPHAGAN P [Concomitant]
     Dosage: 0.15 %, UNK
  6. TRAVATAN Z [Concomitant]
     Dosage: 0.004 %, UNK
  7. AZOPT [Concomitant]
     Dosage: 1 %, UNK
  8. LORATADINE [Concomitant]
     Dosage: 10 mg, UNK
  9. NORVASC [Concomitant]
     Dosage: 5 mg, UNK
  10. TRICOR                             /00090101/ [Concomitant]
     Dosage: 48 mg, UNK
  11. DIOVAN HCT [Concomitant]
     Dosage: 106/12.5
  12. LANTUS [Concomitant]
     Dosage: UNK
  13. PRAVASTATIN [Concomitant]
     Dosage: 10 mg, UNK
  14. ALBUTEROL                          /00139501/ [Concomitant]
     Dosage: 90 mug, UNK
  15. ADVAIR [Concomitant]
     Dosage: UNK
  16. TOPROL [Concomitant]
     Dosage: 100 mg, UNK
  17. NEXIUM                             /01479302/ [Concomitant]
     Dosage: 20 mg, UNK
  18. ASPIRIN [Concomitant]
     Dosage: 81 mg EC
  19. VITAMIN D3 [Concomitant]
     Dosage: 5000 unit, UNK
  20. VITAMIN B 12 [Concomitant]
     Dosage: 1000 CR, UNK
  21. FISH OIL [Concomitant]
     Dosage: UNK
  22. COQ-10 [Concomitant]
     Dosage: 10 mg, UNK
  23. PROGESTERONE [Concomitant]
     Dosage: UNK CRE 10%
  24. MULTIVITAMINES WITH IRON           /02170101/ [Concomitant]
     Dosage: UNK

REACTIONS (1)
  - Psoriasis [Unknown]
